FAERS Safety Report 24416564 (Version 4)
Quarter: 2025Q2

REPORT INFORMATION
  Report Type: Spontaneous
  Country: US (occurrence: US)
  Receive Date: 20241009
  Receipt Date: 20250606
  Transmission Date: 20250717
  Serious: No
  Sender: NOVEN
  Company Number: US-NOVEN PHARMACEUTICALS, INC.-2024-NOV-US001111

PATIENT
  Age: 47 Year
  Sex: Female
  Weight: 53.515 kg

DRUGS (2)
  1. XELSTRYM [Suspect]
     Active Substance: DEXTROAMPHETAMINE
     Indication: Attention deficit hyperactivity disorder
     Route: 062
  2. XELSTRYM [Suspect]
     Active Substance: DEXTROAMPHETAMINE
     Route: 062

REACTIONS (4)
  - Application site rash [Not Recovered/Not Resolved]
  - Application site erythema [Not Recovered/Not Resolved]
  - Intentional product use issue [Not Recovered/Not Resolved]
  - Incorrect dose administered [Unknown]
